FAERS Safety Report 20779938 (Version 1)
Quarter: 2022Q2

REPORT INFORMATION
  Report Type: Spontaneous
  Country: PL (occurrence: PL)
  Receive Date: 20220503
  Receipt Date: 20220503
  Transmission Date: 20220721
  Serious: Yes (Other)
  Sender: FDA-Public Use
  Company Number: PL-NOVARTISPH-NVSC2022PL097454

PATIENT
  Age: 52 Year
  Sex: Female

DRUGS (3)
  1. RIBOCICLIB [Suspect]
     Active Substance: RIBOCICLIB
     Indication: Hormone receptor positive HER2 negative breast cancer
     Dosage: UNK
     Route: 065
  2. LETROZOLE [Concomitant]
     Active Substance: LETROZOLE
     Indication: Product used for unknown indication
     Dosage: UNK
     Route: 065
     Dates: start: 20200408
  3. GOSERELIN [Concomitant]
     Active Substance: GOSERELIN
     Indication: Product used for unknown indication
     Dosage: UNK
     Route: 065
     Dates: start: 20200408

REACTIONS (13)
  - Metastases to bone [Unknown]
  - Metastases to lymph nodes [Unknown]
  - Metastases to liver [Unknown]
  - Neoplasm malignant [Unknown]
  - Toxicity to various agents [Unknown]
  - COVID-19 [Unknown]
  - Pleural effusion [Unknown]
  - Pain [Unknown]
  - Hypertension [Unknown]
  - Mite allergy [Unknown]
  - Atelectasis [Unknown]
  - Pulmonary mass [Unknown]
  - Breast mass [Unknown]

NARRATIVE: CASE EVENT DATE: 20200220
